FAERS Safety Report 7762173-2 (Version None)
Quarter: 2011Q3

REPORT INFORMATION
  Report Type: 
  Country: None (occurrence: None)
  Receive Date: 20110920
  Receipt Date: 20110906
  Transmission Date: 20111222
  Serious: Yes (Hospitalization)
  Sender: FDA-Public Use
  Company Number: JP-ROCHE-713124

PATIENT
  Sex: Female
  Weight: 41 kg

DRUGS (28)
  1. DICLOFENAC SODIUM [Concomitant]
     Indication: RHEUMATOID ARTHRITIS
     Dates: start: 20050811
  2. METHOTREXATE [Suspect]
     Indication: RHEUMATOID ARTHRITIS
     Route: 065
     Dates: start: 20080513, end: 20081118
  3. AMBROXOL HYDROCHLORIDE [Concomitant]
     Dosage: AS NEEDED
     Dates: start: 20080610
  4. FOLIC ACID [Concomitant]
     Dates: start: 20080730, end: 20081118
  5. CEFCAPENE PIVOXIL HYDROCHLORIDE [Concomitant]
     Dates: start: 20100606, end: 20100616
  6. PREDNISOLONE [Suspect]
     Route: 065
     Dates: start: 20081210, end: 20081216
  7. PREDNISOLONE [Suspect]
     Route: 065
     Dates: start: 20090114, end: 20090120
  8. TEPRENONE [Concomitant]
     Indication: GASTRITIS PROPHYLAXIS
     Dates: start: 20070501, end: 20070715
  9. SERRAPEPTASE [Concomitant]
     Dosage: AS NEEDED
     Dates: start: 20080610
  10. LOXOPROFEN SODIUM [Concomitant]
     Dosage: AS NEEDED.
     Dates: start: 20090415
  11. TOCILIZUMAB [Suspect]
     Indication: RHEUMATOID ARTHRITIS
     Dosage: RESCUE THERAPY
     Route: 065
     Dates: start: 20090427, end: 20100519
  12. OCRELIZUMAB [Suspect]
     Indication: RHEUMATOID ARTHRITIS
     Dosage: PATIENT WITH DRAWN FROM STUDY ON 19 OCT 2009.
     Route: 042
     Dates: start: 20080827, end: 20090223
  13. TACROLIMUS [Suspect]
     Indication: RHEUMATOID ARTHRITIS
     Route: 065
     Dates: start: 20070627, end: 20081125
  14. TACROLIMUS [Suspect]
     Route: 065
     Dates: start: 20090211, end: 20100701
  15. PREDNISOLONE [Suspect]
     Indication: RHEUMATOID ARTHRITIS
     Route: 065
     Dates: start: 20040603, end: 20081126
  16. PREDNISOLONE [Suspect]
     Route: 065
     Dates: start: 20090121, end: 20090426
  17. PREDNISOLONE [Suspect]
     Route: 065
     Dates: start: 20090610, end: 20091018
  18. ALENDRONATE SODIUM [Concomitant]
     Indication: OSTEOPOROSIS
     Dates: start: 20071225
  19. METHOTREXATE [Suspect]
     Route: 065
     Dates: start: 20090223, end: 20100623
  20. PREDNISOLONE [Suspect]
     Route: 065
     Dates: start: 20081217, end: 20081223
  21. PREDNISOLONE [Suspect]
     Route: 065
     Dates: start: 20081224
  22. PREDNISOLONE [Suspect]
     Route: 065
     Dates: start: 20090527, end: 20090609
  23. PREDNISOLONE [Suspect]
     Route: 065
     Dates: start: 20091018, end: 20100209
  24. PREDNISOLONE [Suspect]
     Route: 065
     Dates: start: 20081127, end: 20081209
  25. PREDNISOLONE [Suspect]
     Route: 065
     Dates: start: 20090427, end: 20090526
  26. PREDNISOLONE [Suspect]
     Route: 065
     Dates: start: 20100210, end: 20100708
  27. FOLIC ACID [Concomitant]
     Dates: start: 20090223, end: 20100626
  28. ALENDRONATE SODIUM [Concomitant]
     Dates: start: 20091225

REACTIONS (1)
  - ORGANISING PNEUMONIA [None]
